FAERS Safety Report 16124017 (Version 1)
Quarter: 2019Q1

REPORT INFORMATION
  Report Type: Spontaneous
  Country: FR (occurrence: FR)
  Receive Date: 20190327
  Receipt Date: 20190327
  Transmission Date: 20190418
  Serious: Yes (Hospitalization)
  Sender: FDA-Public Use
  Company Number: FR-ALLERGAN-1913393US

PATIENT
  Sex: Female

DRUGS (6)
  1. IMOVANE [Concomitant]
     Active Substance: ZOPICLONE
  2. SERESTA [Concomitant]
     Active Substance: OXAZEPAM
  3. LOXEN (NICARDIPINE HYDROCHLORIDE) [Suspect]
     Active Substance: NICARDIPINE HYDROCHLORIDE
     Indication: HYPERTENSION
     Dosage: UNK, SINGLE (10MG/10ML)
     Route: 041
     Dates: start: 20121201, end: 20121201
  4. UVEDOSE [Concomitant]
     Active Substance: CHOLECALCIFEROL
  5. ESCITALOPRAM OXALATE - BP [Suspect]
     Active Substance: ESCITALOPRAM OXALATE
     Indication: DEPRESSION
     Dosage: 10 MG, QD
     Route: 048
     Dates: start: 201209, end: 20121201
  6. COTAREG [Suspect]
     Active Substance: HYDROCHLOROTHIAZIDE\VALSARTAN
     Indication: HYPERTENSION
     Dosage: 1 DF, QD (80 MG/12,5 MG)
     Route: 048
     Dates: start: 2012, end: 20121201

REACTIONS (3)
  - Tonic clonic movements [Recovered/Resolved]
  - Hypotension [Recovered/Resolved]
  - Coma [Recovered/Resolved]

NARRATIVE: CASE EVENT DATE: 20121201
